FAERS Safety Report 6638506-7 (Version None)
Quarter: 2010Q1

REPORT INFORMATION
  Report Type: 
  Country: None (occurrence: None)
  Receive Date: 20100317
  Receipt Date: 20100305
  Transmission Date: 20100710
  Serious: Yes (Hospitalization, Other)
  Sender: FDA-Public Use
  Company Number: US-ELI_LILLY_AND_COMPANY-US200811005173

PATIENT
  Sex: Female
  Weight: 99.773 kg

DRUGS (17)
  1. BYETTA [Suspect]
     Dosage: 5 UG, 2/D
     Route: 058
     Dates: start: 20060330, end: 20060425
  2. BYETTA [Suspect]
     Dosage: 10 UG, 2/D
     Route: 058
     Dates: start: 20060426, end: 20081119
  3. YASMIN [Concomitant]
  4. CIPRO [Concomitant]
     Indication: URINARY TRACT INFECTION
     Dates: start: 20080101, end: 20080101
  5. ZOCOR [Concomitant]
     Dosage: 20 MG, UNK
  6. ZOCOR [Concomitant]
     Dosage: 40 MG, UNK
  7. GLUCOPHAGE [Concomitant]
     Dosage: 500 MG, 2/D
     Dates: start: 20050101, end: 20060701
  8. SYNTHROID [Concomitant]
     Dosage: 77 UG, UNK
  9. SYNTHROID [Concomitant]
     Dosage: 88 UG, UNK
  10. LISINOPRIL [Concomitant]
     Dosage: 10 MG, DAILY (1/D)
  11. IMITREX [Concomitant]
     Dosage: 10 MG, AS NEEDED
  12. BENICAR [Concomitant]
     Dosage: 20 MG, DAILY (1/D)
  13. ASPIRIN [Concomitant]
     Dosage: 81 MG, DAILY (1/D)
  14. ACIPHEX [Concomitant]
     Dosage: 20 MG, DAILY (1/D)
  15. HYDROCHLOROTHIAZIDE [Concomitant]
     Dosage: 37.5 MG, DAILY (1/D)
  16. K-DUR [Concomitant]
     Dosage: 20 MEQ, 2/D
  17. VICODIN ES [Concomitant]

REACTIONS (4)
  - GASTRIC DISORDER [None]
  - IMPAIRED GASTRIC EMPTYING [None]
  - PANCREATITIS ACUTE [None]
  - PANCREATITIS RELAPSING [None]
